FAERS Safety Report 4744454-X (Version None)
Quarter: 2005Q3

REPORT INFORMATION
  Report Type: 
  Country: None (occurrence: None)
  Receive Date: 20050809
  Receipt Date: 20050729
  Transmission Date: 20060218
  Serious: Yes (Other)
  Sender: FDA-Public Use
  Company Number: 2005100589

PATIENT
  Age: 50 Year
  Sex: Female

DRUGS (2)
  1. ESTRING [Suspect]
     Indication: INCONTINENCE
     Dosage: (EVERY 3 MONTHS),
     Dates: start: 20020101
  2. ESTRING [Suspect]
     Indication: UROGENITAL DISORDER
     Dosage: (EVERY 3 MONTHS),
     Dates: start: 20020101

REACTIONS (19)
  - ANXIETY [None]
  - ARTHRITIS [None]
  - ASTHMA [None]
  - ATTENTION DEFICIT/HYPERACTIVITY DISORDER [None]
  - CARDIOVASCULAR DISORDER [None]
  - CYSTOCELE [None]
  - DEPRESSION [None]
  - DERMATOSIS [None]
  - GASTROOESOPHAGEAL REFLUX DISEASE [None]
  - HYPERCHOLESTEROLAEMIA [None]
  - HYPERLIPIDAEMIA [None]
  - IRRITABLE BOWEL SYNDROME [None]
  - MUSCLE STRAIN [None]
  - MYOCARDIAL INFARCTION [None]
  - NEURODERMATITIS [None]
  - OESOPHAGEAL SPASM [None]
  - STRESS INCONTINENCE [None]
  - VAGINAL INFECTION [None]
  - VENOUS INSUFFICIENCY [None]
